FAERS Safety Report 4498074-5 (Version None)
Quarter: 2004Q3

REPORT INFORMATION
  Report Type: 
  Country: None (occurrence: None)
  Receive Date: 20040927
  Receipt Date: 20040813
  Transmission Date: 20050211
  Serious: No
  Sender: FDA-Public Use
  Company Number: USA040773677

PATIENT
  Age: 23 Year
  Sex: Male
  Weight: 132 kg

DRUGS (1)
  1. STRATTERA [Suspect]
     Indication: ATTENTION DEFICIT/HYPERACTIVITY DISORDER
     Dosage: 25 MG/L DAY
     Dates: start: 20040723

REACTIONS (6)
  - DRY MOUTH [None]
  - DRY THROAT [None]
  - ERECTILE DYSFUNCTION [None]
  - INSOMNIA [None]
  - LIBIDO INCREASED [None]
  - SOMNOLENCE [None]
